FAERS Safety Report 6269880-1 (Version None)
Quarter: 2009Q3

REPORT INFORMATION
  Report Type: 
  Country: None (occurrence: None)
  Receive Date: 20090716
  Receipt Date: 20090701
  Transmission Date: 20100115
  Serious: Yes (Hospitalization)
  Sender: FDA-Public Use
  Company Number: PHHY2009LB26558

PATIENT
  Sex: Female
  Weight: 77 kg

DRUGS (3)
  1. LETROZOLE [Suspect]
     Indication: BREAST CANCER
     Dosage: 2.5 MG DAILY
     Dates: start: 20090201
  2. CIPROFLOXACIN [Concomitant]
     Dosage: 250 MG, BID
  3. CORTICOSTEROIDS [Concomitant]

REACTIONS (8)
  - ANAEMIA HAEMOLYTIC AUTOIMMUNE [None]
  - ASTHENIA [None]
  - BLOOD BILIRUBIN INCREASED [None]
  - COOMBS DIRECT TEST POSITIVE [None]
  - COOMBS INDIRECT TEST POSITIVE [None]
  - FATIGUE [None]
  - HAPTOGLOBIN DECREASED [None]
  - RETICULOCYTE COUNT INCREASED [None]
